FAERS Safety Report 16090154 (Version 2)
Quarter: 2019Q2

REPORT INFORMATION
  Report Type: Report from Study
  Country: US (occurrence: US)
  Receive Date: 20190319
  Receipt Date: 20190416
  Transmission Date: 20190711
  Serious: Yes (Hospitalization, Other)
  Sender: FDA-Public Use
  Company Number: US-GILEAD-2019-0397129

PATIENT
  Age: 50 Year
  Sex: Male

DRUGS (5)
  1. AMBRISENTAN [Suspect]
     Active Substance: AMBRISENTAN
     Indication: PRODUCT USED FOR UNKNOWN INDICATION
     Dosage: 10 MG, QD
     Route: 065
     Dates: start: 20140304
  2. SILDENAFIL. [Concomitant]
     Active Substance: SILDENAFIL
  3. OXYGEN. [Concomitant]
     Active Substance: OXYGEN
  4. LASIX + K [Concomitant]
     Active Substance: FUROSEMIDE\POTASSIUM CHLORIDE
  5. SILDENAFIL CITRATE. [Concomitant]
     Active Substance: SILDENAFIL CITRATE

REACTIONS (9)
  - Pain [Unknown]
  - Pyrexia [Unknown]
  - Chills [Unknown]
  - Bundle branch block right [Unknown]
  - Cardiomegaly [Unknown]
  - Abnormal behaviour [Unknown]
  - Dyspnoea [Unknown]
  - Gallbladder disorder [Unknown]
  - Blood pressure increased [Recovering/Resolving]
